FAERS Safety Report 18777896 (Version 2)
Quarter: 2021Q1

REPORT INFORMATION
  Report Type: Report from Study
  Country: US (occurrence: US)
  Receive Date: 20210123
  Receipt Date: 20210217
  Transmission Date: 20210419
  Serious: Yes (Death, Hospitalization, Other)
  Sender: FDA-Public Use
  Company Number: NVSC2021US015115

PATIENT
  Age: 49 Year
  Sex: Male
  Weight: 160 kg

DRUGS (1)
  1. MYFORTIC [Suspect]
     Active Substance: MYCOPHENOLATE SODIUM
     Indication: PRODUCT USED FOR UNKNOWN INDICATION
     Dosage: UNK
     Route: 065

REACTIONS (3)
  - Cardiomyopathy [Unknown]
  - Obesity [Unknown]
  - Cardiac failure congestive [Fatal]

NARRATIVE: CASE EVENT DATE: 20200722
